FAERS Safety Report 13448504 (Version 2)
Quarter: 2017Q2

REPORT INFORMATION
  Report Type: Spontaneous
  Country: US (occurrence: US)
  Receive Date: 20170417
  Receipt Date: 20170601
  Transmission Date: 20170830
  Serious: Yes (Hospitalization, Other)
  Sender: FDA-Public Use
  Company Number: US-GILEAD-2017-0266976

PATIENT
  Age: 49 Year
  Sex: Male

DRUGS (1)
  1. GENVOYA [Suspect]
     Active Substance: COBICISTAT\ELVITEGRAVIR\EMTRICITABINE\TENOFOVIR ALAFENAMIDE FUMARATE
     Indication: PRODUCT USED FOR UNKNOWN INDICATION
     Dosage: UNK
     Route: 065
     Dates: start: 2016

REACTIONS (7)
  - Gastrooesophageal reflux disease [Unknown]
  - Eructation [Unknown]
  - Middle insomnia [Unknown]
  - Dry mouth [Unknown]
  - Chest discomfort [Not Recovered/Not Resolved]
  - Myocardial infarction [Unknown]
  - Dry throat [Unknown]

NARRATIVE: CASE EVENT DATE: 2016
